FAERS Safety Report 8953072 (Version 1)
Quarter: 2012Q4

REPORT INFORMATION
  Report Type: 
  Country: US (occurrence: US)
  Receive Date: 20121205
  Receipt Date: 20121205
  Transmission Date: 20130627
  Serious: No
  Sender: FDA-Public Use
  Company Number: US-009507513-1212USA001108

PATIENT
  Sex: Female

DRUGS (2)
  1. AZASITE [Suspect]
     Dosage: 3 Gtt, Once
     Route: 047
     Dates: start: 20121128, end: 20121128
  2. AZASITE [Suspect]
     Dosage: 2 Gtt in each eye for 2 days
     Route: 047
     Dates: start: 20121201

REACTIONS (3)
  - Drug dose omission [Unknown]
  - Product quality issue [Unknown]
  - No adverse event [Unknown]
